FAERS Safety Report 23636285 (Version 1)
Quarter: 2024Q1

REPORT INFORMATION
  Report Type: Spontaneous
  Country: US (occurrence: US)
  Receive Date: 20240315
  Receipt Date: 20240315
  Transmission Date: 20240410
  Serious: No
  Sender: FDA-Public Use
  Company Number: US-P+L Developments of Newyork Corporation-2154424

PATIENT

DRUGS (2)
  1. DOCOSANOL [Suspect]
     Active Substance: DOCOSANOL
     Route: 065
     Dates: start: 20240301
  2. DOCOSANOL [Suspect]
     Active Substance: DOCOSANOL
     Route: 065
     Dates: start: 20240301

REACTIONS (1)
  - Drug ineffective [Unknown]

NARRATIVE: CASE EVENT DATE: 20240301
